FAERS Safety Report 6620340-5 (Version None)
Quarter: 2010Q1

REPORT INFORMATION
  Report Type: 
  Country: None (occurrence: None)
  Receive Date: 20100304
  Receipt Date: 20100222
  Transmission Date: 20100710
  Serious: Yes (Hospitalization)
  Sender: FDA-Public Use
  Company Number: A-US2010-33242

PATIENT
  Age: 37 Year
  Sex: Female

DRUGS (4)
  1. TRACLEER [Suspect]
     Indication: PULMONARY ARTERIAL HYPERTENSION
     Dosage: 125 MG, BID, ORAL
     Route: 048
     Dates: start: 20040809
  2. VANCOMYCIN [Suspect]
  3. REVATIO [Concomitant]
  4. REMODULIN [Concomitant]

REACTIONS (5)
  - BURNING SENSATION [None]
  - DEVICE RELATED INFECTION [None]
  - DRUG HYPERSENSITIVITY [None]
  - FACE OEDEMA [None]
  - STAPHYLOCOCCAL INFECTION [None]
